FAERS Safety Report 15205762 (Version 1)
Quarter: 2018Q3

REPORT INFORMATION
  Report Type: Spontaneous
  Country: GB (occurrence: GB)
  Receive Date: 20180727
  Receipt Date: 20180727
  Transmission Date: 20181010
  Serious: Yes (Other)
  Sender: FDA-Public Use
  Company Number: GB-TEVA-2018-GB-929969

PATIENT
  Age: 74 Year
  Sex: Male
  Weight: 96.16 kg

DRUGS (4)
  1. CIPROFLOXACIN HYDROCHLORIDE. [Suspect]
     Active Substance: CIPROFLOXACIN HYDROCHLORIDE
     Indication: PROSTATIC DISORDER
     Dosage: 1000 MILLIGRAM DAILY; ONE TABLET AT 9AM ONE TABLET 9PM
     Route: 048
     Dates: start: 20180620, end: 20180624
  2. TRIMETHOPRIM. [Concomitant]
     Active Substance: TRIMETHOPRIM
     Route: 065
  3. SOLIFENACIN SUCCINATE. [Concomitant]
     Active Substance: SOLIFENACIN SUCCINATE
     Route: 065
  4. ATORVASTATIN [Concomitant]
     Active Substance: ATORVASTATIN
     Route: 065

REACTIONS (3)
  - Secretion discharge [Unknown]
  - Penile erythema [Not Recovered/Not Resolved]
  - Penile blister [Unknown]

NARRATIVE: CASE EVENT DATE: 20180623
